FAERS Safety Report 15499766 (Version 1)
Quarter: 2018Q4

REPORT INFORMATION
  Report Type: Spontaneous
  Country: CN (occurrence: CN)
  Receive Date: 20181015
  Receipt Date: 20181015
  Transmission Date: 20190205
  Serious: Yes (Other)
  Sender: FDA-Public Use
  Company Number: CN-PFIZER INC-2018406672

PATIENT
  Age: 37 Year
  Sex: Female
  Weight: 54 kg

DRUGS (5)
  1. DIOSMIN [Suspect]
     Active Substance: DIOSMIN
     Indication: VASODILATATION
     Dosage: 1.35 G, 2X/DAY
     Route: 048
     Dates: start: 20180731, end: 20180801
  2. FAMOTIDINE. [Concomitant]
     Active Substance: FAMOTIDINE
     Indication: HYPERCHLORHYDRIA
     Dosage: 20 MG, 2X/DAY
     Route: 048
     Dates: start: 20180731, end: 20180731
  3. CELEBREX [Suspect]
     Active Substance: CELECOXIB
     Indication: INFLAMMATORY PAIN
     Dosage: 0.4 G, 1X/DAY
     Route: 048
     Dates: start: 20180731, end: 20180731
  4. DIOSMIN [Suspect]
     Active Substance: DIOSMIN
     Indication: PERIPHERAL VENOUS DISEASE
  5. FAMOTIDINE. [Concomitant]
     Active Substance: FAMOTIDINE
     Indication: PROPHYLAXIS

REACTIONS (4)
  - Pruritus [Recovering/Resolving]
  - Skin warm [Recovering/Resolving]
  - Rash [Recovering/Resolving]
  - Flushing [Recovering/Resolving]

NARRATIVE: CASE EVENT DATE: 20180801
